FAERS Safety Report 5291890-1 (Version None)
Quarter: 2007Q2

REPORT INFORMATION
  Report Type: 
  Country: None (occurrence: None)
  Receive Date: 20070410
  Receipt Date: 20070307
  Transmission Date: 20071010
  Serious: Yes (Hospitalization)
  Sender: FDA-Public Use
  Company Number: CH-SANOFI-SYNTHELABO-F01200700299

PATIENT
  Sex: Female

DRUGS (7)
  1. GEMCITABINE [Suspect]
     Route: 042
     Dates: start: 20051118, end: 20051118
  2. FRAGMIN [Concomitant]
     Dates: start: 20051116, end: 20051126
  3. UNKNOWN GENERIC [Concomitant]
     Dates: start: 20051106, end: 20051121
  4. GASTROSIL [Concomitant]
     Dates: start: 20051118
  5. MST [Concomitant]
     Dates: start: 20051108
  6. CAPECITABINE [Suspect]
     Route: 048
     Dates: start: 20051118
  7. OXALIPLATIN [Suspect]
     Indication: PANCREATIC CARCINOMA
     Route: 042
     Dates: start: 20051118, end: 20051118

REACTIONS (2)
  - CHOLESTASIS [None]
  - PYREXIA [None]
